FAERS Safety Report 8848630 (Version 3)
Quarter: 2013Q2

REPORT INFORMATION
  Report Type: Spontaneous
  Country: US (occurrence: US)
  Receive Date: 20121018
  Receipt Date: 20130611
  Transmission Date: 20140414
  Serious: Yes (Hospitalization, Disabling, Other)
  Sender: FDA-Public Use
  Company Number: US-009507513-1206USA00017

PATIENT
  Sex: Female
  Weight: 61.22 kg

DRUGS (9)
  1. FOSAMAX [Suspect]
     Indication: OSTEOPOROSIS
     Dosage: 70 MG, UNK
     Route: 048
     Dates: start: 200105, end: 200401
  2. FOSAMAX [Suspect]
     Indication: OSTEOPENIA
     Dosage: 70 MG, UNK
     Route: 048
     Dates: start: 20060331, end: 200609
  3. ACTONEL [Suspect]
     Indication: OSTEOPOROSIS
     Dosage: 5 MG, UNK
     Route: 048
     Dates: start: 200402, end: 200602
  4. ACTONEL [Suspect]
     Indication: OSTEOPENIA
  5. BONIVA [Suspect]
     Indication: OSTEOPOROSIS
     Dosage: 150 MG, UNK
     Route: 048
     Dates: start: 200610, end: 200911
  6. BONIVA [Suspect]
     Indication: OSTEOPENIA
  7. CENTRUM SILVER [Concomitant]
     Indication: PRODUCT USED FOR UNKNOWN INDICATION
     Dosage: UNK
     Dates: start: 2000
  8. TUMS [Concomitant]
     Indication: PRODUCT USED FOR UNKNOWN INDICATION
     Dosage: UNK
     Dates: start: 2000
  9. VITAMIN E [Concomitant]
     Indication: PRODUCT USED FOR UNKNOWN INDICATION
     Dosage: UNK
     Dates: start: 1987, end: 2007

REACTIONS (66)
  - Open reduction of fracture [Recovering/Resolving]
  - Low turnover osteopathy [Not Recovered/Not Resolved]
  - Intraductal proliferative breast lesion [Unknown]
  - Open reduction of fracture [Recovering/Resolving]
  - Femur fracture [Recovering/Resolving]
  - Femur fracture [Recovering/Resolving]
  - Anxiety [Unknown]
  - Depression [Unknown]
  - Rib fracture [Unknown]
  - Foot fracture [Recovering/Resolving]
  - Rib fracture [Unknown]
  - Vitamin D deficiency [Unknown]
  - Hypertension [Unknown]
  - Blood cholesterol increased [Unknown]
  - Hypothyroidism [Unknown]
  - Restless legs syndrome [Unknown]
  - Elbow operation [Recovered/Resolved]
  - Carpal tunnel syndrome [Unknown]
  - Bursitis [Unknown]
  - Osteoarthritis [Not Recovered/Not Resolved]
  - Lumbar radiculopathy [Not Recovered/Not Resolved]
  - Joint injury [Recovered/Resolved]
  - Ligament sprain [Recovering/Resolving]
  - Somnolence [Unknown]
  - Bruxism [Unknown]
  - Epicondylitis [Not Recovered/Not Resolved]
  - Cellulitis [Unknown]
  - Hysterectomy [Unknown]
  - Oophorectomy [Unknown]
  - Fall [Unknown]
  - Muscle strain [Unknown]
  - Cardiac murmur [Unknown]
  - Chronic obstructive pulmonary disease [Unknown]
  - Upper respiratory tract infection [Unknown]
  - Foot fracture [Recovering/Resolving]
  - Nasal operation [Unknown]
  - Limb injury [Unknown]
  - Cystopexy [Unknown]
  - Bursitis [Unknown]
  - Trigeminal neuralgia [Unknown]
  - Gait disturbance [Not Recovered/Not Resolved]
  - Bronchitis [Unknown]
  - Breast cyst [Unknown]
  - Inflammation [Unknown]
  - Androgenetic alopecia [Not Recovered/Not Resolved]
  - Thyroid cyst [Unknown]
  - Ear pain [Unknown]
  - Pneumonia [Unknown]
  - Spinal compression fracture [Unknown]
  - Osteoarthritis [Recovering/Resolving]
  - Oral candidiasis [Recovering/Resolving]
  - Decubitus ulcer [Unknown]
  - Insomnia [Unknown]
  - Anger [Unknown]
  - Benign neoplasm [Unknown]
  - Bone marrow oedema syndrome [Unknown]
  - Bone lesion [Unknown]
  - Ligament sprain [Unknown]
  - Unevaluable event [Unknown]
  - Dyspepsia [Unknown]
  - Constipation [Unknown]
  - Pain in extremity [Unknown]
  - Pain in extremity [Unknown]
  - Gastritis [Unknown]
  - Gastrooesophageal reflux disease [Unknown]
  - Arthralgia [Unknown]
